FAERS Safety Report 6226781-2 (Version None)
Quarter: 2009Q2

REPORT INFORMATION
  Report Type: 
  Country: None (occurrence: None)
  Receive Date: 20090612
  Receipt Date: 20090521
  Transmission Date: 20091009
  Serious: No
  Sender: FDA-Public Use
  Company Number: US-ABBOTT-09P-163-0575459-00

PATIENT
  Sex: Female
  Weight: 77.18 kg

DRUGS (13)
  1. HUMIRA [Suspect]
     Indication: RHEUMATOID ARTHRITIS
     Route: 058
     Dates: start: 20090508, end: 20090508
  2. METORMIN [Concomitant]
     Indication: DIABETES MELLITUS
  3. ASPIRIN [Concomitant]
     Indication: ANGIOPLASTY
  4. CITRICAL [Concomitant]
     Indication: ROUTINE HEALTH MAINTENANCE
  5. CINNAMON [Concomitant]
     Indication: DRUG USE FOR UNKNOWN INDICATION
  6. ASCORBIC ACID [Concomitant]
     Indication: ROUTINE HEALTH MAINTENANCE
  7. KUZYME [Concomitant]
     Indication: COLITIS
  8. ENTECORT EC [Concomitant]
     Indication: COLITIS
  9. AZACOL [Concomitant]
     Indication: COLITIS
  10. ACTONEL [Concomitant]
     Indication: OSTEOPOROSIS
  11. FOLIC ACID [Concomitant]
     Indication: RHEUMATOID ARTHRITIS
  12. VITAMIN B-12 [Concomitant]
     Indication: ROUTINE HEALTH MAINTENANCE
  13. BALANCE B COMPLEX [Concomitant]
     Indication: ROUTINE HEALTH MAINTENANCE

REACTIONS (6)
  - INJECTION SITE IRRITATION [None]
  - NAUSEA [None]
  - PAIN [None]
  - PRURITUS GENERALISED [None]
  - URTICARIA [None]
  - WEIGHT DECREASED [None]
